FAERS Safety Report 5839857-6 (Version None)
Quarter: 2008Q3

REPORT INFORMATION
  Report Type: 
  Country: None (occurrence: None)
  Receive Date: 20080811
  Receipt Date: 20080801
  Transmission Date: 20090109
  Serious: Yes (Other)
  Sender: FDA-Public Use
  Company Number: US-AMGEN-US287398

PATIENT
  Sex: Female
  Weight: 69 kg

DRUGS (12)
  1. PROCRIT [Suspect]
     Indication: ANAEMIA OF MALIGNANT DISEASE
     Dates: start: 20080101, end: 20080507
  2. CARBOPLATIN [Concomitant]
     Dates: end: 20080312
  3. TAXOL [Concomitant]
     Dates: end: 20080312
  4. THEOPHYLLINE [Concomitant]
  5. NEXIUM [Concomitant]
  6. MAGNESIUM SULFATE [Concomitant]
  7. ESTRADIOL [Concomitant]
  8. ATIVAN [Concomitant]
  9. FLEXERIL [Concomitant]
  10. TRAZODONE HCL [Concomitant]
  11. ADVAIR DISKUS 100/50 [Concomitant]
     Route: 055
  12. ALBUTEROL [Concomitant]
     Route: 055

REACTIONS (2)
  - APLASIA PURE RED CELL [None]
  - THERAPEUTIC RESPONSE DECREASED [None]
